FAERS Safety Report 6124638-9 (Version None)
Quarter: 2009Q1

REPORT INFORMATION
  Report Type: 
  Country: None (occurrence: None)
  Receive Date: 20090319
  Receipt Date: 20090312
  Transmission Date: 20090719
  Serious: Yes (Other)
  Sender: FDA-Public Use
  Company Number: B0564608A

PATIENT
  Age: 28 Year
  Sex: Female

DRUGS (3)
  1. ZYBAN [Suspect]
     Indication: SMOKING CESSATION THERAPY
     Route: 048
     Dates: start: 20090101, end: 20090209
  2. SALBUTAMOL [Concomitant]
     Route: 055
  3. SYMBICORT [Concomitant]
     Route: 055

REACTIONS (3)
  - ABNORMAL BEHAVIOUR [None]
  - PARANOIA [None]
  - SELF INJURIOUS BEHAVIOUR [None]
